FAERS Safety Report 7149201-2 (Version None)
Quarter: 2010Q4

REPORT INFORMATION
  Report Type: 
  Country: None (occurrence: None)
  Receive Date: 20101209
  Receipt Date: 20101202
  Transmission Date: 20110411
  Serious: Yes (Other)
  Sender: FDA-Public Use
  Company Number: JP-PFIZER INC-2010161983

PATIENT
  Age: 30 Year
  Sex: Female

DRUGS (3)
  1. ZOLOFT [Suspect]
     Indication: DEPRESSIVE SYMPTOM
     Dosage: UNK
     Route: 048
     Dates: start: 20100901
  2. AKINETON [Concomitant]
     Dosage: 3 MG/DAY
     Dates: start: 20101108
  3. RIVOTRIL [Concomitant]
     Dosage: 0.5 MG/DAY
     Dates: start: 20101124

REACTIONS (2)
  - AKATHISIA [None]
  - RESTLESS LEGS SYNDROME [None]
